FAERS Safety Report 23097146 (Version 1)
Quarter: 2023Q4

REPORT INFORMATION
  Report Type: Spontaneous
  Country: AU (occurrence: AU)
  Receive Date: 20231023
  Receipt Date: 20231023
  Transmission Date: 20240109
  Serious: Yes (Other)
  Sender: FDA-Public Use
  Company Number: AU-SUN PHARMACEUTICAL INDUSTRIES LTD-2023R1-413213

PATIENT
  Sex: Female

DRUGS (2)
  1. DOXYCYCLINE [Suspect]
     Active Substance: DOXYCYCLINE
     Indication: Antibiotic therapy
     Dosage: 100 MILLIGRAM, BID
     Route: 048
  2. PENICILLIN G [Concomitant]
     Active Substance: PENICILLIN G
     Indication: Antibiotic therapy
     Dosage: 1.2 GRAM FOUR TIMES PER DAY
     Route: 042

REACTIONS (1)
  - Jarisch-Herxheimer reaction [Unknown]
